FAERS Safety Report 20466442 (Version 2)
Quarter: 2022Q1

REPORT INFORMATION
  Report Type: Spontaneous
  Country: US (occurrence: None)
  Receive Date: 20220213
  Receipt Date: 20220311
  Transmission Date: 20220423
  Serious: No
  Sender: FDA-Public Use
  Company Number: 2022A048747

PATIENT
  Age: 63 Year
  Sex: Female
  Weight: 133.8 kg

DRUGS (1)
  1. FASENRA [Suspect]
     Active Substance: BENRALIZUMAB
     Indication: Asthma
     Dosage: 30MG/ML EVERY FOUR WEEKS
     Route: 058
     Dates: start: 20211228

REACTIONS (8)
  - COVID-19 [Unknown]
  - Dehydration [Unknown]
  - Thinking abnormal [Unknown]
  - Fatigue [Unknown]
  - Memory impairment [Unknown]
  - Dizziness [Unknown]
  - Wrong technique in device usage process [Unknown]
  - Drug dose omission by device [Unknown]

NARRATIVE: CASE EVENT DATE: 20220103
